FAERS Safety Report 14946172 (Version 12)
Quarter: 2020Q1

REPORT INFORMATION
  Report Type: Report from Study
  Country: US (occurrence: US)
  Receive Date: 20180529
  Receipt Date: 20200207
  Transmission Date: 20200409
  Serious: Yes (Hospitalization, Other)
  Sender: FDA-Public Use
  Company Number: US-ROCHE-2129974

PATIENT
  Age: 54 Year
  Sex: Male
  Weight: 113.5 kg

DRUGS (6)
  1. OCREVUS [Suspect]
     Active Substance: OCRELIZUMAB
     Route: 042
     Dates: start: 2017, end: 201802
  2. OCREVUS [Suspect]
     Active Substance: OCRELIZUMAB
     Dosage: ONGOING: NO
     Route: 042
     Dates: start: 2017
  3. OCREVUS [Suspect]
     Active Substance: OCRELIZUMAB
     Indication: RELAPSING-REMITTING MULTIPLE SCLEROSIS
     Dosage: 2ND HALF OF FIRST DOSE
     Route: 042
     Dates: start: 20170809, end: 201708
  4. OCREVUS [Suspect]
     Active Substance: OCRELIZUMAB
     Dosage: ONGOING :YES
     Route: 065
     Dates: start: 20170726
  5. OCREVUS [Suspect]
     Active Substance: OCRELIZUMAB
     Indication: RELAPSING MULTIPLE SCLEROSIS
     Dosage: 1/2 OF FIRST DOSE
     Route: 042
     Dates: start: 20170726, end: 201707
  6. OCREVUS [Suspect]
     Active Substance: OCRELIZUMAB
     Route: 042
     Dates: start: 2017, end: 20180620

REACTIONS (15)
  - Cellulitis [Recovered/Resolved]
  - Localised infection [Not Recovered/Not Resolved]
  - Localised infection [Recovered/Resolved]
  - Skin laceration [Recovered/Resolved]
  - Peripheral swelling [Unknown]
  - Agitation [Not Recovered/Not Resolved]
  - Skin ulcer [Recovered/Resolved]
  - Dyslexia [Unknown]
  - Infection [Recovered/Resolved]
  - Staphylococcus test positive [Recovered/Resolved]
  - Multiple sclerosis [Not Recovered/Not Resolved]
  - Hypoaesthesia [Not Recovered/Not Resolved]
  - Loss of consciousness [Recovered/Resolved]
  - Pruritus [Not Recovered/Not Resolved]
  - Limb injury [Not Recovered/Not Resolved]

NARRATIVE: CASE EVENT DATE: 201802
